FAERS Safety Report 4363384-9 (Version None)
Quarter: 2004Q2

REPORT INFORMATION
  Report Type: 
  Country: None (occurrence: None)
  Receive Date: 20040518
  Receipt Date: 20040510
  Transmission Date: 20050107
  Serious: No
  Sender: FDA-Public Use
  Company Number: 04H-161-0260421-00

PATIENT

DRUGS (4)
  1. MORPHINE SUL INJ [Suspect]
     Indication: ANALGESIC EFFECT
     Dosage: 0.2 MILLIGRAM/MILLILITERS, EPIDURAL
     Route: 008
  2. BUPIVACAINE HCL [Suspect]
     Indication: ANALGESIC EFFECT
     Dosage: 1.25 MG, EPIDURAL
     Route: 008
  3. LIDOCAINE WITH ADRENALINE [Concomitant]
  4. BUPIVACAINE HCL [Concomitant]

REACTIONS (1)
  - HYPOTENSION [None]
